FAERS Safety Report 9937646 (Version 1)
Quarter: 2014Q1

REPORT INFORMATION
  Report Type: Spontaneous
  Country: GR (occurrence: GR)
  Receive Date: 20140303
  Receipt Date: 20140303
  Transmission Date: 20141002
  Serious: Yes (Other)
  Sender: FDA-Public Use
  Company Number: GR-ROCHE-1352645

PATIENT
  Age: 67 Year
  Sex: Female

DRUGS (3)
  1. XENICAL [Suspect]
     Indication: WEIGHT DECREASED
     Route: 065
  2. FULCIN FORTE [Suspect]
     Indication: ANAEMIA
     Route: 065
  3. VITAMIN C [Concomitant]

REACTIONS (6)
  - Erythema [Not Recovered/Not Resolved]
  - Pruritus [Not Recovered/Not Resolved]
  - Pain [Not Recovered/Not Resolved]
  - Purulence [Not Recovered/Not Resolved]
  - Sensation of heaviness [Not Recovered/Not Resolved]
  - Pruritus genital [Recovering/Resolving]
